FAERS Safety Report 5818557-2 (Version None)
Quarter: 2008Q3

REPORT INFORMATION
  Report Type: 
  Country: None (occurrence: None)
  Receive Date: 20080718
  Receipt Date: 20080612
  Transmission Date: 20090109
  Serious: Yes (Hospitalization)
  Sender: FDA-Public Use
  Company Number: 2008US001794

PATIENT
  Age: 72 Year
  Sex: Female
  Weight: 85.7298 kg

DRUGS (2)
  1. AMEVIVE [Suspect]
     Indication: PSORIASIS
     Dosage: 15 MG, WEEKLY, IM
     Route: 030
     Dates: start: 20030429
  2. METHOTREXATE [Concomitant]

REACTIONS (1)
  - HAEMORRHAGE [None]
